FAERS Safety Report 10185216 (Version 1)
Quarter: 2014Q2

REPORT INFORMATION
  Report Type: Spontaneous
  Country: BR (occurrence: BR)
  Receive Date: 20140521
  Receipt Date: 20140521
  Transmission Date: 20141212
  Serious: Yes (Other)
  Sender: FDA-Public Use
  Company Number: BR-PFIZER INC-2014131726

PATIENT
  Age: 69 Year
  Sex: Female
  Weight: 60 kg

DRUGS (2)
  1. XALATAN [Suspect]
     Indication: GLAUCOMA
     Dosage: 3 UG, 1 DROP IN EACH EYE, ONCE A DAY
     Route: 047
     Dates: start: 20110513
  2. AZOPT [Concomitant]
     Dosage: 1 GTT, 2X/DAY (1 DROP IN EACH EYE 2X/DAY)
     Dates: start: 2013

REACTIONS (1)
  - Visual acuity reduced [Unknown]
